FAERS Safety Report 7012967-6 (Version None)
Quarter: 2010Q3

REPORT INFORMATION
  Report Type: 
  Country: None (occurrence: None)
  Receive Date: 20100924
  Receipt Date: 20100923
  Transmission Date: 20110219
  Serious: No
  Sender: FDA-Public Use
  Company Number: US-JNJFOC-20100806335

PATIENT
  Sex: Male
  Weight: 72.58 kg

DRUGS (2)
  1. DURAGESIC-100 [Suspect]
     Indication: BACK PAIN
     Route: 062
  2. PERCOCET [Concomitant]
     Indication: BREAKTHROUGH PAIN
     Dosage: 10/325MG TABLET/10/325MG/UP TO 3 PER DAY AS NEEDED
     Route: 048

REACTIONS (6)
  - COUGH [None]
  - INCORRECT DRUG ADMINISTRATION DURATION [None]
  - LACRIMATION INCREASED [None]
  - PRODUCT QUALITY ISSUE [None]
  - SNEEZING [None]
  - THERAPEUTIC RESPONSE DECREASED [None]
